FAERS Safety Report 13243767 (Version 3)
Quarter: 2017Q2

REPORT INFORMATION
  Report Type: Spontaneous
  Country: IE (occurrence: IE)
  Receive Date: 20170216
  Receipt Date: 20170410
  Transmission Date: 20170830
  Serious: Yes (Other)
  Sender: FDA-Public Use
  Company Number: IE-ALLERGAN-1705893US

PATIENT
  Age: 44 Year
  Sex: Female
  Weight: 65 kg

DRUGS (1)
  1. BOTOX [Suspect]
     Active Substance: ONABOTULINUMTOXINA
     Indication: SKIN COSMETIC PROCEDURE
     Dosage: 76 UNITS, SINGLE
     Route: 030
     Dates: start: 20170117, end: 20170117

REACTIONS (6)
  - Disturbance in attention [Not Recovered/Not Resolved]
  - Headache [Recovering/Resolving]
  - Hyperaesthesia [Recovering/Resolving]
  - Fatigue [Recovering/Resolving]
  - Diplopia [Recovering/Resolving]
  - Nausea [Recovering/Resolving]

NARRATIVE: CASE EVENT DATE: 20170117
